FAERS Safety Report 24603464 (Version 1)
Quarter: 2024Q4

REPORT INFORMATION
  Report Type: Spontaneous
  Country: US (occurrence: None)
  Receive Date: 20241109
  Receipt Date: 20241109
  Transmission Date: 20250115
  Serious: Yes (Hospitalization, Other)
  Sender: Public
  Company Number: None

PATIENT
  Age: 48 Year
  Sex: Female
  Weight: 75.6 kg

DRUGS (8)
  1. ICLUSIG [Suspect]
     Active Substance: PONATINIB HYDROCHLORIDE
     Indication: Chronic myeloid leukaemia
     Dosage: 1 TABLET DAILY ORAL
     Route: 048
     Dates: start: 20241104, end: 20241106
  2. Metformin XR [Concomitant]
  3. SPIRONOLACTONE [Concomitant]
  4. Emgality [Concomitant]
  5. CYMBALTA [Concomitant]
  6. Sudafed [Concomitant]
  7. Allegra 24 hr [Concomitant]
  8. ASA 81mg [Concomitant]

REACTIONS (26)
  - Headache [None]
  - Hypoaesthesia [None]
  - Hypoaesthesia [None]
  - Paraesthesia [None]
  - Brain fog [None]
  - Myalgia [None]
  - Muscle spasms [None]
  - Chest pain [None]
  - Dyspnoea [None]
  - Palpitations [None]
  - Burning sensation [None]
  - Hyperhidrosis [None]
  - Confusional state [None]
  - Coordination abnormal [None]
  - Hypoaesthesia [None]
  - Muscle twitching [None]
  - Pain [None]
  - Restless legs syndrome [None]
  - Feeling abnormal [None]
  - Pain in jaw [None]
  - Electric shock sensation [None]
  - Erythema [None]
  - Tinnitus [None]
  - Nausea [None]
  - Vertigo [None]
  - Swelling face [None]

NARRATIVE: CASE EVENT DATE: 20241107
